FAERS Safety Report 4406251-4 (Version None)
Quarter: 2004Q3

REPORT INFORMATION
  Report Type: 
  Country: None (occurrence: None)
  Receive Date: 20040723
  Receipt Date: 20030325
  Transmission Date: 20050211
  Serious: No
  Sender: FDA-Public Use
  Company Number: US-GLAXOSMITHKLINE-A0401919A

PATIENT
  Age: 82 Year
  Sex: Female
  Weight: 74.5 kg

DRUGS (7)
  1. AVANDIA [Suspect]
     Dosage: 4MG PER DAY
     Route: 048
     Dates: start: 20030312, end: 20030321
  2. OTHER MEDICATIONS [Concomitant]
  3. COUMADIN [Concomitant]
     Route: 048
  4. ISOSORBID [Concomitant]
     Indication: CORONARY ARTERY DISEASE
  5. DIETARY SUPPLEMENT [Concomitant]
     Indication: CHELATION THERAPY
  6. TIAZAC [Concomitant]
  7. LOPRESSOR [Concomitant]
     Indication: CORONARY ARTERY DISEASE

REACTIONS (4)
  - FEELING ABNORMAL [None]
  - HEADACHE [None]
  - NAUSEA [None]
  - VISUAL DISTURBANCE [None]
